FAERS Safety Report 8517340-7 (Version None)
Quarter: 2012Q3

REPORT INFORMATION
  Report Type: 
  Country: None (occurrence: None)
  Receive Date: 20120718
  Receipt Date: 20120711
  Transmission Date: 20120928
  Serious: Yes (Hospitalization, Other)
  Sender: FDA-Public Use
  Company Number: US-PFIZER INC-2012084482

PATIENT
  Sex: Male
  Weight: 95.238 kg

DRUGS (2)
  1. DENOSUMAB [Concomitant]
     Indication: METASTASES TO BONE
     Dosage: UNK
     Dates: start: 20110510
  2. INLYTA [Suspect]
     Indication: METASTATIC RENAL CELL CARCINOMA
     Dosage: 5 MG, 2X/DAY DURATION OF REGIMEN: 2 WEEKS
     Route: 048
     Dates: start: 20120317, end: 20120401

REACTIONS (6)
  - METASTATIC RENAL CELL CARCINOMA [None]
  - GAIT DISTURBANCE [None]
  - HAEMORRHAGE [None]
  - RENAL HAEMORRHAGE [None]
  - FATIGUE [None]
  - DISEASE PROGRESSION [None]
